FAERS Safety Report 5300342-1 (Version None)
Quarter: 2007Q2

REPORT INFORMATION
  Report Type: 
  Country: None (occurrence: None)
  Receive Date: 20070411
  Receipt Date: 20070327
  Transmission Date: 20071010
  Serious: Yes (Other)
  Sender: FDA-Public Use
  Company Number: 2007JP001292

PATIENT
  Sex: Female

DRUGS (2)
  1. VESICARE [Suspect]
     Indication: HYPERTONIC BLADDER
     Dosage: SEE IMAGE
     Route: 048
     Dates: start: 20070206, end: 20070301
  2. VESICARE [Suspect]
     Indication: HYPERTONIC BLADDER
     Dosage: SEE IMAGE
     Route: 048
     Dates: start: 20070310, end: 20070322

REACTIONS (4)
  - DRY MOUTH [None]
  - DYSPHONIA [None]
  - OBSTRUCTIVE AIRWAYS DISORDER [None]
  - STRAWBERRY TONGUE [None]
